FAERS Safety Report 7807261-7 (Version None)
Quarter: 2011Q4

REPORT INFORMATION
  Report Type: 
  Country: None (occurrence: None)
  Receive Date: 20111011
  Receipt Date: 20111007
  Transmission Date: 20120403
  Serious: Yes (Hospitalization, Other)
  Sender: FDA-Public Use
  Company Number: US-PFIZER INC-2011140961

PATIENT
  Sex: Female

DRUGS (3)
  1. PLAVIX [Concomitant]
     Indication: ACUTE CORONARY SYNDROME
     Dosage: UNK
     Dates: start: 19970101
  2. NEURONTIN [Concomitant]
     Indication: CONVULSION
     Dosage: UNK
     Dates: start: 20050101
  3. CHANTIX [Suspect]
     Indication: SMOKING CESSATION THERAPY
     Dosage: 1 MG, UNK
     Dates: start: 20070501, end: 20070601

REACTIONS (8)
  - DEPRESSION [None]
  - EMOTIONAL DISTRESS [None]
  - IMPAIRED DRIVING ABILITY [None]
  - ANXIETY [None]
  - ABNORMAL BEHAVIOUR [None]
  - MENTAL DISORDER [None]
  - INSOMNIA [None]
  - AGGRESSION [None]
